FAERS Safety Report 19507612 (Version 2)
Quarter: 2021Q3

REPORT INFORMATION
  Report Type: Spontaneous
  Country: US (occurrence: US)
  Receive Date: 20210708
  Receipt Date: 20210908
  Transmission Date: 20211014
  Serious: Yes (Other)
  Sender: FDA-Public Use
  Company Number: US-TEVA-2021-US-1928848

PATIENT
  Age: 72 Year
  Sex: Female

DRUGS (16)
  1. VINCRISTINE [Suspect]
     Active Substance: VINCRISTINE
     Indication: ADNEXAL TORSION
  2. METHOTREXATE. [Suspect]
     Active Substance: METHOTREXATE
     Indication: TRIPLE HIT LYMPHOMA
     Route: 037
  3. METHOTREXATE. [Suspect]
     Active Substance: METHOTREXATE
     Indication: ADNEXAL TORSION
  4. PREDNISONE. [Suspect]
     Active Substance: PREDNISONE
     Indication: ADNEXAL TORSION
  5. VINCRISTINE [Suspect]
     Active Substance: VINCRISTINE
     Indication: TRIPLE HIT LYMPHOMA
     Dosage: AS PER THE DA?EPOCH?R REGIMEN
     Route: 065
  6. ETOPOSIDE. [Suspect]
     Active Substance: ETOPOSIDE
     Indication: ADNEXAL TORSION
  7. RITUXIMAB. [Suspect]
     Active Substance: RITUXIMAB
     Indication: TRIPLE HIT LYMPHOMA
     Dosage: AS PER THE DA?EPOCH?R REGIMEN
     Route: 065
  8. VENETOCLAX. [Suspect]
     Active Substance: VENETOCLAX
     Indication: TRIPLE HIT LYMPHOMA
     Dosage: DURING CYCLES 2, 3 AND 4
     Route: 065
  9. RITUXIMAB. [Suspect]
     Active Substance: RITUXIMAB
     Indication: ADNEXAL TORSION
  10. PREDNISONE. [Suspect]
     Active Substance: PREDNISONE
     Indication: TRIPLE HIT LYMPHOMA
     Dosage: AS PER THE DA?EPOCH?R REGIMEN
     Route: 065
  11. DOXORUBICIN [Suspect]
     Active Substance: DOXORUBICIN
     Indication: TRIPLE HIT LYMPHOMA
     Dosage: AS PER THE DA?EPOCH?R REGIMEN
     Route: 065
  12. DOXORUBICIN [Suspect]
     Active Substance: DOXORUBICIN
     Indication: ADNEXAL TORSION
  13. CYCLOPHOSPHAMIDE. [Suspect]
     Active Substance: CYCLOPHOSPHAMIDE
     Indication: TRIPLE HIT LYMPHOMA
     Dosage: AS PER THE DA?EPOCH?R REGIMEN
     Route: 065
  14. ETOPOSIDE. [Suspect]
     Active Substance: ETOPOSIDE
     Indication: TRIPLE HIT LYMPHOMA
     Dosage: AS PER THE DA?EPOCH?R REGIMEN
     Route: 065
  15. CYCLOPHOSPHAMIDE. [Suspect]
     Active Substance: CYCLOPHOSPHAMIDE
     Indication: ADNEXAL TORSION
  16. VENETOCLAX. [Suspect]
     Active Substance: VENETOCLAX
     Indication: ADNEXAL TORSION

REACTIONS (8)
  - Vocal cord paralysis [Unknown]
  - Dysphonia [Recovering/Resolving]
  - Alopecia [Unknown]
  - Gastrooesophageal reflux disease [Recovering/Resolving]
  - Nausea [Unknown]
  - Motor neurone disease [Unknown]
  - Neuropathy peripheral [Not Recovered/Not Resolved]
  - Decreased appetite [Recovering/Resolving]
